FAERS Safety Report 11789375 (Version 3)
Quarter: 2016Q1

REPORT INFORMATION
  Report Type: Spontaneous
  Country: JP (occurrence: JP)
  Receive Date: 20151201
  Receipt Date: 20160311
  Transmission Date: 20160525
  Serious: Yes (Death, Life-Threatening, Hospitalization)
  Sender: FDA-Public Use
  Company Number: JP-ACTELION-A-CH2015-127940

PATIENT
  Age: 31 Year
  Sex: Male

DRUGS (19)
  1. EPOPROSTENOL ACT [Suspect]
     Active Substance: EPOPROSTENOL
     Dosage: UNK
     Route: 042
     Dates: start: 20150923
  2. OPSUMIT [Suspect]
     Active Substance: MACITENTAN
     Dosage: 10 MG, OD
     Route: 048
     Dates: start: 20150918, end: 20150925
  3. TRACLEER [Suspect]
     Active Substance: BOSENTAN
     Indication: PULMONARY ARTERIAL HYPERTENSION
     Route: 048
  4. TORASEMIDE [Concomitant]
     Active Substance: TORSEMIDE
  5. EPLERENONE. [Concomitant]
     Active Substance: EPLERENONE
  6. BERAPROST SODIUM [Concomitant]
     Active Substance: BERAPROST SODIUM
  7. OPSUMIT [Suspect]
     Active Substance: MACITENTAN
     Dosage: 5 MG, OD
     Route: 048
     Dates: start: 20150926, end: 20151030
  8. TADALAFIL [Concomitant]
     Active Substance: TADALAFIL
  9. FUROSEMIDE. [Concomitant]
     Active Substance: FUROSEMIDE
  10. WARFARIN [Concomitant]
     Active Substance: WARFARIN
  11. TRICHLORMETHIAZIDE [Concomitant]
     Active Substance: TRICHLORMETHIAZIDE
  12. OXYGEN. [Concomitant]
     Active Substance: OXYGEN
  13. EPOPROSTENOL ACT [Suspect]
     Active Substance: EPOPROSTENOL
     Indication: PULMONARY ARTERIAL HYPERTENSION
     Dosage: 10 NG/KG, PER MIN
     Route: 042
     Dates: end: 20151104
  14. TOLVAPTAN [Concomitant]
     Active Substance: TOLVAPTAN
  15. OPSUMIT [Suspect]
     Active Substance: MACITENTAN
     Indication: PULMONARY ARTERIAL HYPERTENSION
     Dosage: 5 MG, OD
     Route: 048
     Dates: start: 20150902, end: 20150917
  16. FEBUXOSTAT. [Concomitant]
     Active Substance: FEBUXOSTAT
  17. SILDENAFIL. [Concomitant]
     Active Substance: SILDENAFIL
  18. EPOPROSTENOL ACT [Suspect]
     Active Substance: EPOPROSTENOL
     Dosage: 50 NG/KG, PER MIN
     Route: 042
     Dates: end: 20151116
  19. POTASSIUM CHLORIDE. [Concomitant]
     Active Substance: POTASSIUM CHLORIDE

REACTIONS (8)
  - Condition aggravated [Fatal]
  - Low cardiac output syndrome [Fatal]
  - Ascites [Not Recovered/Not Resolved]
  - No therapeutic response [Unknown]
  - Right ventricular failure [Fatal]
  - Pulmonary arterial hypertension [Fatal]
  - Urine output decreased [Fatal]
  - Oral administration complication [Unknown]

NARRATIVE: CASE EVENT DATE: 2015
